FAERS Safety Report 6702329-0 (Version None)
Quarter: 2010Q2

REPORT INFORMATION
  Report Type: 
  Country: None (occurrence: None)
  Receive Date: 20100429
  Receipt Date: 20100420
  Transmission Date: 20101027
  Serious: Yes (Hospitalization)
  Sender: FDA-Public Use
  Company Number: US-ALEXION-A201000453

PATIENT
  Sex: Female

DRUGS (2)
  1. SOLIRIS [Suspect]
     Route: 042
  2. SOLIRIS [Suspect]
     Dosage: UNK
     Route: 042

REACTIONS (3)
  - ABSCESS [None]
  - GASTRIC ULCER [None]
  - HAEMOGLOBIN DECREASED [None]
